FAERS Safety Report 14314623 (Version 1)
Quarter: 2017Q4

REPORT INFORMATION
  Report Type: Spontaneous
  Country: US (occurrence: US)
  Receive Date: 20171221
  Receipt Date: 20171221
  Transmission Date: 20180321
  Serious: Yes (Life-Threatening)
  Sender: FDA-Public Use
  Company Number: None

PATIENT
  Age: 51 Year
  Sex: Male
  Weight: 56.5 kg

DRUGS (1)
  1. TIPIFARNIB 900MG [Suspect]
     Active Substance: TIPIFARNIB
     Indication: LARYNGEAL SQUAMOUS CELL CARCINOMA
     Route: 048
     Dates: start: 20171206, end: 20171212

REACTIONS (7)
  - Anaemia [None]
  - Thrombocytopenia [None]
  - Therapy cessation [None]
  - Decreased appetite [None]
  - Neutrophil count abnormal [None]
  - Nausea [None]
  - Infection [None]

NARRATIVE: CASE EVENT DATE: 20171215
